FAERS Safety Report 8915238 (Version 2)
Quarter: 2013Q2

REPORT INFORMATION
  Report Type: Report from Study
  Country: DE (occurrence: DE)
  Receive Date: 20121116
  Receipt Date: 20130524
  Transmission Date: 20140414
  Serious: Yes (Hospitalization)
  Sender: FDA-Public Use
  Company Number: DE-TEVA-370291GER

PATIENT
  Age: 54 Year
  Sex: Female
  Weight: 76 kg

DRUGS (6)
  1. NON PEGYLATED LIPOSOMAL DOXORUBICIN [Suspect]
     Indication: BREAST CANCER
     Route: 042
     Dates: start: 20120813, end: 20121107
  2. NON PEGYLATED LIPOSOMAL DOXORUBICIN [Suspect]
     Route: 042
     Dates: start: 20111207
  3. PACLITAXEL [Suspect]
     Indication: BREAST CANCER
     Route: 042
     Dates: start: 20120813, end: 20121107
  4. PACLITAXEL [Suspect]
     Route: 042
     Dates: start: 20111207
  5. BEVACIZUMAB [Suspect]
     Indication: BREAST CANCER
     Route: 042
     Dates: start: 20120813
  6. BEVACIZUMAB [Suspect]
     Route: 042
     Dates: start: 20111207

REACTIONS (1)
  - Anal fissure [Recovered/Resolved]
